FAERS Safety Report 22083218 (Version 6)
Quarter: 2024Q2

REPORT INFORMATION
  Report Type: Spontaneous
  Country: US (occurrence: US)
  Receive Date: 20230310
  Receipt Date: 20240604
  Transmission Date: 20240716
  Serious: Yes (Other)
  Sender: FDA-Public Use
  Company Number: US-SANOFI-01519412

PATIENT
  Age: 28 Year
  Sex: Male
  Weight: 72.5 kg

DRUGS (16)
  1. ALPROLIX [Suspect]
     Active Substance: EFTRENONACOG ALFA
     Indication: Factor IX deficiency
     Dosage: 4250 U (+/- 10%), BIW
     Route: 041
  2. ALPROLIX [Suspect]
     Active Substance: EFTRENONACOG ALFA
     Indication: Factor IX deficiency
     Dosage: 4250 U (+/- 10%), BIW
     Route: 041
  3. ALPROLIX [Suspect]
     Active Substance: EFTRENONACOG ALFA
     Dosage: 8500 U (+/- 10%), PRN (FOR MAJOR BLEEDS)
     Route: 041
  4. ALPROLIX [Suspect]
     Active Substance: EFTRENONACOG ALFA
     Dosage: 8500 U (+/- 10%), PRN (FOR MAJOR BLEEDS)
     Route: 041
  5. ALPROLIX [Suspect]
     Active Substance: EFTRENONACOG ALFA
     Dosage: 4250 U (+/- 10%), PRN (FOR MINOR BLEEDS)
     Route: 041
  6. ALPROLIX [Suspect]
     Active Substance: EFTRENONACOG ALFA
     Dosage: 4250 U (+/- 10%), PRN (FOR MINOR BLEEDS)
     Route: 041
  7. ALPROLIX [Suspect]
     Active Substance: EFTRENONACOG ALFA
     Dosage: 4000 U, BIW
     Route: 041
  8. ALPROLIX [Suspect]
     Active Substance: EFTRENONACOG ALFA
     Dosage: 4000 U, BIW
     Route: 041
  9. ALPROLIX [Suspect]
     Active Substance: EFTRENONACOG ALFA
     Dosage: 5000  U (+/-10%) , BIW
     Route: 041
  10. ALPROLIX [Suspect]
     Active Substance: EFTRENONACOG ALFA
     Dosage: 5000  U (+/-10%) , BIW
     Route: 041
  11. ALPROLIX [Suspect]
     Active Substance: EFTRENONACOG ALFA
     Dosage: 5000 U (+/-10%) , PRN FOR MINOR BLEEDS
     Route: 041
  12. ALPROLIX [Suspect]
     Active Substance: EFTRENONACOG ALFA
     Dosage: 5000 U (+/-10%) , PRN FOR MINOR BLEEDS
     Route: 041
  13. ALPROLIX [Suspect]
     Active Substance: EFTRENONACOG ALFA
     Dosage: 10000 U (+/-10%) PRN FOR MAJOR BLEEDS
     Route: 041
  14. ALPROLIX [Suspect]
     Active Substance: EFTRENONACOG ALFA
     Dosage: 10000 U (+/-10%) PRN FOR MAJOR BLEEDS
     Route: 041
  15. OMEPRAZOLE [Concomitant]
     Active Substance: DONEPEZIL HYDROCHLORIDE\OMEPRAZOLE\OMEPRAZOLE MAGNESIUM
     Dosage: UNK
  16. CELEBREX [Concomitant]
     Active Substance: CELECOXIB
     Dosage: UNK

REACTIONS (3)
  - Haemorrhage [Unknown]
  - Haemorrhage [Unknown]
  - Haemorrhage [Unknown]

NARRATIVE: CASE EVENT DATE: 20240111
